FAERS Safety Report 9556482 (Version 1)
Quarter: 2013Q3

REPORT INFORMATION
  Report Type: Spontaneous
  Country: US (occurrence: None)
  Receive Date: 20130906
  Receipt Date: 20130906
  Transmission Date: 20140515
  Serious: Yes (Other)
  Sender: FDA-Public Use
  Company Number: 163-POMAL-13061266

PATIENT
  Age: 76 Year
  Sex: Female
  Weight: 81.6 kg

DRUGS (15)
  1. POMALYST [Suspect]
     Indication: PLASMA CELL MYELOMA
     Dosage: CAPSULE, 3 MG, 21 IN 28 D, PO
     Dates: start: 201305, end: 201305
  2. ASPIRIN (ACETYLSALICYLIC ACID) [Concomitant]
  3. DEXAMETHASONE [Concomitant]
  4. OXYCODONE-ACETAMINOPHEN (OXYCOCET) [Concomitant]
  5. SINGULAIR [Concomitant]
  6. LIPITOR (ATORVASTATIN) [Concomitant]
  7. SYNTHROID (LEVOTHYROXINE SODIUM) [Concomitant]
  8. SUDAFED 12 HOUR (PSEUDOEPHEDRINE HYDROCHLORIDE) [Concomitant]
  9. GABAPENTIN [Concomitant]
  10. GLIMEPIRIDE [Concomitant]
  11. DIGESTIVE PROBIOTIC (BIFIDOBACTERIUM LACTIS) [Concomitant]
  12. ARANESP (DARBEPOETIN ALFA) [Concomitant]
  13. LEVOFLOXACIN [Concomitant]
  14. VALACYCLOVIR HCL [Concomitant]
  15. NOVOLOG FLEXPEN (INSULIN ASPART) [Concomitant]

REACTIONS (3)
  - White blood cell count decreased [None]
  - Full blood count decreased [None]
  - Sunburn [None]
